FAERS Safety Report 6371341-6 (Version None)
Quarter: 2009Q3

REPORT INFORMATION
  Report Type: 
  Country: None (occurrence: None)
  Receive Date: 20090921
  Receipt Date: 20090921
  Transmission Date: 20100115
  Serious: No
  Sender: FDA-Public Use
  Company Number: None

PATIENT
  Age: 55 Year
  Sex: Female

DRUGS (1)
  1. ARMOUR THYROID 180 MG FOREST [Suspect]
     Indication: HYPOTHYROIDISM
     Dosage: 1 1X / DAY PO
     Route: 048
     Dates: start: 20090529, end: 20090920

REACTIONS (1)
  - UNEVALUABLE EVENT [None]
